FAERS Safety Report 16174766 (Version 1)
Quarter: 2019Q2

REPORT INFORMATION
  Report Type: Report from Study
  Country: US (occurrence: US)
  Receive Date: 20190409
  Receipt Date: 20190409
  Transmission Date: 20190711
  Serious: No
  Sender: FDA-Public Use
  Company Number: PHEH2019US014853

PATIENT
  Sex: Male

DRUGS (1)
  1. COSENTYX [Suspect]
     Active Substance: SECUKINUMAB
     Indication: PSORIASIS
     Dosage: 300 MG, QW ((2 PENS, AT WEEKS 0, 1, 2, 3, AND 4, THEN INJECT 300MG ONCE EVERY 4 WEEKS)
     Route: 058

REACTIONS (2)
  - Psoriasis [Unknown]
  - Pruritus [Unknown]
